FAERS Safety Report 10242322 (Version 1)
Quarter: 2014Q1

REPORT INFORMATION
  Report Type: Spontaneous
  Country: US (occurrence: None)
  Receive Date: 20140306
  Receipt Date: 20140306
  Transmission Date: 20141002
  Serious: Yes (Other)
  Sender: FDA-Public Use
  Company Number: 163-21880-13052204

PATIENT
  Age: 65 Year
  Sex: Male

DRUGS (10)
  1. REVLIMID (LENALIDOMIDE) (25 MILLIGRAM, CAPSULES) [Suspect]
     Indication: PLASMA CELL MYELOMA
     Dosage: 25 MG, 14 IN 21 D, PO
     Route: 048
     Dates: start: 20130406
  2. ASPIRIN (ACETYLASLICYLIC ACID) [Concomitant]
  3. BENADRYL (DIPHENHYDRAMINE) [Concomitant]
  4. COMPAZINE (PROCHLORPERAZINE EDISYLATE) [Concomitant]
  5. HYDROCORTISONE [Concomitant]
  6. MULTIVITAMINS [Concomitant]
  7. VELCADE (BORTEZOMIB) [Concomitant]
  8. VICODIN [Concomitant]
  9. DEXAMETHASONE [Concomitant]
  10. ACYCLOVIR (ACICLOVIR) (ACICLOVIR) [Concomitant]

REACTIONS (1)
  - Deep vein thrombosis [None]
